FAERS Safety Report 4375560-X (Version None)
Quarter: 2004Q2

REPORT INFORMATION
  Report Type: 
  Country: None (occurrence: None)
  Receive Date: 20040610
  Receipt Date: 20040601
  Transmission Date: 20050107
  Serious: Yes (Other)
  Sender: FDA-Public Use
  Company Number: PHFR2004GB02304

PATIENT
  Age: 41 Year
  Sex: Female

DRUGS (1)
  1. CLOZARIL [Suspect]
     Indication: SCHIZOPHRENIA
     Dosage: 250MG/DAY
     Route: 048
     Dates: start: 20040312

REACTIONS (3)
  - EUPHORIC MOOD [None]
  - NEUTROPENIA [None]
  - TACHYCARDIA [None]
